FAERS Safety Report 20968786 (Version 1)
Quarter: 2022Q2

REPORT INFORMATION
  Report Type: Spontaneous
  Country: US (occurrence: None)
  Receive Date: 20220616
  Receipt Date: 20220616
  Transmission Date: 20220720
  Serious: Yes (Hospitalization)
  Sender: FDA-Public Use
  Company Number: None

PATIENT
  Age: 66 Year
  Sex: Male

DRUGS (16)
  1. TADALAFIL [Suspect]
     Active Substance: TADALAFIL
     Indication: Pulmonary arterial hypertension
     Route: 048
     Dates: start: 20210717
  2. ALLOPURINOL [Concomitant]
  3. BRAFTOVI [Concomitant]
  4. INVOKANA [Concomitant]
     Active Substance: CANAGLIFLOZIN
  5. IRON [Suspect]
     Active Substance: IRON
  6. LASIX [Concomitant]
  7. MEKTOVI [Concomitant]
     Active Substance: BINIMETINIB
  8. MELATONIN [Concomitant]
     Active Substance: MELATONIN
  9. ONGLYZA [Concomitant]
     Active Substance: SAXAGLIPTIN HYDROCHLORIDE
  10. OPSUMIT [Concomitant]
     Active Substance: MACITENTAN
  11. ORENITRAM [Concomitant]
     Active Substance: TREPROSTINIL
  12. OZEMPIC [Concomitant]
     Active Substance: SEMAGLUTIDE
  13. ROSUVASTATIN [Concomitant]
     Active Substance: ROSUVASTATIN
  14. SPIRONOLACTONE [Concomitant]
     Active Substance: SPIRONOLACTONE
  15. TADALAFIL [Concomitant]
     Active Substance: TADALAFIL
  16. VITAMIN D3 [Concomitant]
     Active Substance: CHOLECALCIFEROL

REACTIONS (1)
  - Sepsis [None]

NARRATIVE: CASE EVENT DATE: 20220501
